FAERS Safety Report 5964577-7 (Version None)
Quarter: 2008Q4

REPORT INFORMATION
  Report Type: 
  Country: None (occurrence: None)
  Receive Date: 20081125
  Receipt Date: 20081120
  Transmission Date: 20090506
  Serious: Yes (Other)
  Sender: FDA-Public Use
  Company Number: US-B.I. PHARMACEUTICALS,INC./RIDGEFIELD-2008-BP-17532BP

PATIENT
  Age: 85 Year
  Sex: Male

DRUGS (2)
  1. FLOMAX [Suspect]
     Indication: BENIGN PROSTATIC HYPERPLASIA
     Dosage: .4MG
     Route: 048
     Dates: start: 20070101
  2. COREG [Concomitant]
     Indication: CARDIAC DISORDER
     Route: 048

REACTIONS (2)
  - CONSTIPATION [None]
  - PROSTATE CANCER [None]
